FAERS Safety Report 18504912 (Version 6)
Quarter: 2020Q4

REPORT INFORMATION
  Report Type: Spontaneous
  Country: DE (occurrence: DE)
  Receive Date: 20201115
  Receipt Date: 20201218
  Transmission Date: 20210114
  Serious: Yes (Life-Threatening, Hospitalization, Other)
  Sender: FDA-Public Use
  Company Number: DE-AUROBINDO-AUR-APL-2020-055698

PATIENT
  Age: 76 Year
  Sex: Male
  Weight: 100 kg

DRUGS (17)
  1. SALBUTAMOL [Concomitant]
     Active Substance: ALBUTEROL
     Indication: PULMONARY FIBROSIS
     Dosage: UNK UNK, PRN
     Route: 065
  2. NOREPINEPHRINE. [Concomitant]
     Active Substance: NOREPINEPHRINE
     Dosage: 0.25 MICROGRAM/KILOGRAM, 1 MINUTE
     Route: 065
  3. NOREPINEPHRINE. [Concomitant]
     Active Substance: NOREPINEPHRINE
     Dosage: 0.35 MICROGRAM/KILOGRAM, 1 MINUTE
     Route: 065
  4. METFORMIN [Suspect]
     Active Substance: METFORMIN HYDROCHLORIDE
     Indication: DIABETES MELLITUS
     Dosage: 1000 MILLIGRAM, TWO TIMES A DAY
     Route: 048
  5. METFORMIN [Suspect]
     Active Substance: METFORMIN HYDROCHLORIDE
     Indication: TYPE 2 DIABETES MELLITUS
  6. DAPAGLIFLOZIN. [Suspect]
     Active Substance: DAPAGLIFLOZIN
     Indication: TYPE 2 DIABETES MELLITUS
  7. HEPARIN [Concomitant]
     Active Substance: HEPARIN SODIUM
     Indication: METABOLIC DISORDER
     Dosage: POST OPERATIVE DAY 1
     Route: 065
  8. OXYGEN. [Concomitant]
     Active Substance: OXYGEN
     Indication: CHRONIC OBSTRUCTIVE PULMONARY DISEASE
     Dosage: UNK
  9. ROCURONIUM INRESA [Suspect]
     Active Substance: ROCURONIUM BROMIDE
     Indication: GENERAL ANAESTHESIA
     Dosage: UNK
     Route: 065
  10. NOREPINEPHRINE. [Concomitant]
     Active Substance: NOREPINEPHRINE
     Indication: PRODUCT USED FOR UNKNOWN INDICATION
     Dosage: 0.1 MICROGRAM/KILOGRAM, 1 MINUTE
     Route: 065
  11. LIDOCAINE SOLUTION FOR INJECTION [Suspect]
     Active Substance: LIDOCAINE
     Indication: PAIN
     Dosage: UNK
     Route: 042
  12. DAPAGLIFLOZIN. [Suspect]
     Active Substance: DAPAGLIFLOZIN
     Indication: DIABETES MELLITUS
     Dosage: 10 MILLIGRAM, ONCE A DAY
     Route: 048
  13. SALBUTAMOL [Concomitant]
     Active Substance: ALBUTEROL
     Indication: CHRONIC OBSTRUCTIVE PULMONARY DISEASE
  14. LIDOCAINE SOLUTION FOR INJECTION [Suspect]
     Active Substance: LIDOCAINE
     Indication: PERIOPERATIVE ANALGESIA
  15. PROPOFOL. [Suspect]
     Active Substance: PROPOFOL
     Indication: GENERAL ANAESTHESIA
     Dosage: UNK
     Route: 065
  16. SEVOFLURANE. [Suspect]
     Active Substance: SEVOFLURANE
     Indication: GENERAL ANAESTHESIA
     Dosage: UNK
     Route: 065
  17. SUFENTANIL HAMELN [Suspect]
     Active Substance: SUFENTANIL CITRATE
     Indication: GENERAL ANAESTHESIA
     Dosage: UNK
     Route: 065

REACTIONS (12)
  - Metabolic acidosis [Recovering/Resolving]
  - Shock [Recovering/Resolving]
  - Toxicity to various agents [Unknown]
  - Off label use [Unknown]
  - Ventricular tachycardia [Recovered/Resolved]
  - Lactic acidosis [Recovering/Resolving]
  - Euglycaemic diabetic ketoacidosis [Recovering/Resolving]
  - Supraventricular tachycardia [Recovering/Resolving]
  - Atrial flutter [Unknown]
  - Haemodynamic instability [Recovered/Resolved]
  - Anaphylactic shock [Unknown]
  - Intentional product use issue [Recovered/Resolved]
